FAERS Safety Report 8880380 (Version 1)
Quarter: 2012Q4

REPORT INFORMATION
  Report Type: 
  Country: VE (occurrence: VE)
  Receive Date: 20121101
  Receipt Date: 20121101
  Transmission Date: 20130627
  Serious: Yes (Death, Hospitalization, Other)
  Sender: FDA-Public Use
  Company Number: PHHY2012VE098240

PATIENT
  Age: 64 None
  Sex: Female

DRUGS (5)
  1. BUDESONIDE, FORMOTEROL FUMARATE [Suspect]
     Indication: ASTHMATIC CRISIS
     Dosage: UNK, at each 8 or 12 or 24 hours
     Dates: start: 201109
  2. XOLAIR [Suspect]
     Indication: ASTHMA
     Dosage: UNK, at each 15 days
     Dates: start: 20100901, end: 20110901
  3. ANAPRIL [Concomitant]
     Indication: HYPERTENSION
     Dosage: 20 mg, once a day
  4. FOLIC ACID [Concomitant]
     Dosage: 1 DF, one capsule once a day
  5. VITAMIIN C [Concomitant]
     Dosage: 1 DF, one capsule once a day

REACTIONS (5)
  - Respiratory arrest [Fatal]
  - Chest pain [Unknown]
  - Asthma [Unknown]
  - Dyspnoea [Unknown]
  - Thrombocytopenia [Unknown]
